FAERS Safety Report 6341799-7 (Version None)
Quarter: 2009Q3

REPORT INFORMATION
  Report Type: 
  Country: None (occurrence: None)
  Receive Date: 20090904
  Receipt Date: 20090825
  Transmission Date: 20100115
  Serious: Yes (Other)
  Sender: FDA-Public Use
  Company Number: DE-GENENTECH-289621

PATIENT
  Age: 76 Year

DRUGS (1)
  1. LUCENTIS [Suspect]
     Indication: CHOROIDAL NEOVASCULARISATION
     Dosage: UNK
     Route: 031

REACTIONS (1)
  - VISUAL ACUITY REDUCED [None]
